FAERS Safety Report 4335491-8 (Version None)
Quarter: 2004Q1

REPORT INFORMATION
  Report Type: 
  Country: None (occurrence: None)
  Receive Date: 20040330
  Receipt Date: 20040114
  Transmission Date: 20041129
  Serious: No
  Sender: FDA-Public Use
  Company Number: 27549

PATIENT
  Age: 63 Year
  Sex: Female
  Weight: 57.1532 kg

DRUGS (6)
  1. TRAVATAN [Suspect]
     Indication: GLAUCOMA
     Dates: start: 20040113
  2. SYNTHROID [Concomitant]
  3. CYTOMEL [Concomitant]
  4. LANOXIN [Concomitant]
  5. MAXZIDE [Concomitant]
  6. POTASSIUM [Concomitant]

REACTIONS (3)
  - EYE IRRITATION [None]
  - EYE PRURITUS [None]
  - OCULAR HYPERAEMIA [None]
